FAERS Safety Report 4690859-5 (Version None)
Quarter: 2005Q2

REPORT INFORMATION
  Report Type: 
  Country: None (occurrence: None)
  Receive Date: 20050614
  Receipt Date: 20050603
  Transmission Date: 20051028
  Serious: Yes (Hospitalization)
  Sender: FDA-Public Use
  Company Number: GXBR2005US00988

PATIENT
  Sex: Female

DRUGS (1)
  1. LORATADINE [Suspect]
     Dosage: ORAL
     Route: 048

REACTIONS (1)
  - HEART RATE DECREASED [None]
